FAERS Safety Report 15742977 (Version 1)
Quarter: 2018Q4

REPORT INFORMATION
  Report Type: Report from Study
  Country: US (occurrence: US)
  Receive Date: 20181220
  Receipt Date: 20181220
  Transmission Date: 20190205
  Serious: No
  Sender: FDA-Public Use
  Company Number: US-ROCHE-2156948

PATIENT
  Sex: Female

DRUGS (1)
  1. OCREVUS [Suspect]
     Active Substance: OCRELIZUMAB
     Indication: RELAPSING MULTIPLE SCLEROSIS
     Dosage: ON 29/JUN/2018, RECEIVED SECOND DOSE
     Route: 065
     Dates: start: 20180615

REACTIONS (4)
  - Alopecia [Unknown]
  - Nasopharyngitis [Recovering/Resolving]
  - Fatigue [Recovered/Resolved]
  - Sluggishness [Recovered/Resolved]
